FAERS Safety Report 10395889 (Version 1)
Quarter: 2014Q1

REPORT INFORMATION
  Report Type: Spontaneous
  Country: US (occurrence: None)
  Receive Date: 20130524
  Receipt Date: 20130524
  Transmission Date: 20141002
  Serious: No
  Sender: FDA-Public Use
  Company Number: PHEH2012US020824

PATIENT
  Age: 47 Year
  Sex: Male

DRUGS (4)
  1. GILENYA (FINGOLIMOD) CAPSULE, 0.5MG [Suspect]
     Indication: MULTIPLE SCLEROSIS
     Route: 048
     Dates: start: 20120404
  2. BACLOFEN [Concomitant]
  3. RITALIN (METHYLPHENIDATE HYDROCHLORIDE) [Concomitant]
  4. ARICEPT (DONEPEZIL HYDROCHLORIDE) [Concomitant]

REACTIONS (4)
  - Neutrophil count increased [None]
  - Aspartate aminotransferase increased [None]
  - Alanine aminotransferase increased [None]
  - Lymphocyte count decreased [None]
